FAERS Safety Report 24303505 (Version 1)
Quarter: 2024Q3

REPORT INFORMATION
  Report Type: Spontaneous
  Country: US (occurrence: None)
  Receive Date: 20240909
  Receipt Date: 20240909
  Transmission Date: 20241016
  Serious: Yes (Death)
  Sender: Public
  Company Number: None

PATIENT
  Age: 88 Year
  Sex: Female
  Weight: 66.15 kg

DRUGS (18)
  1. REVLIMID [Suspect]
     Active Substance: LENALIDOMIDE
     Indication: Plasma cell leukaemia
     Dosage: 1 TOT  -  TOTAL DAILY ORAL
     Route: 048
     Dates: start: 20170213, end: 20240907
  2. ALENDRONIC ACID [Concomitant]
     Active Substance: ALENDRONIC ACID
  3. Aspir-81 81 mg tablet,delayed release [Concomitant]
  4. B12 5,000 mcg-100 mcg sublingual lozenge [Concomitant]
  5. CALCITRIOL 0.25 MCG CAPSUL [Concomitant]
  6. clonidine 0.1 mg/24 hr weekly transdermal patch [Concomitant]
  7. D3-2000 2,000 unit capsule [Concomitant]
  8. DEXAMETHASONE [Concomitant]
     Active Substance: DEXAMETHASONE
  9. FUROSEMIDE [Concomitant]
     Active Substance: FUROSEMIDE
  10. glimepiride 2 mg tablet [Concomitant]
  11. Januvia 50 mg tablet [Concomitant]
  12. magnesium 250 mg table [Concomitant]
  13. METHIMAZOLE 5 MG TABLET [Concomitant]
  14. dit	potassium chloride ER 10 mEq capsule,extended release [Concomitant]
  15. oxybutynin chloride 5 mg tablet [Concomitant]
  16. potassium chloride ER 20 mEq tablet,extended release [Concomitant]
  17. rosuvastatin 10 mg table [Concomitant]
  18. HYDROCHLOROTHIAZIDE\VALSARTAN [Concomitant]
     Active Substance: HYDROCHLOROTHIAZIDE\VALSARTAN

REACTIONS (1)
  - Death [None]

NARRATIVE: CASE EVENT DATE: 20240907
